FAERS Safety Report 4658108-1 (Version None)
Quarter: 2005Q2

REPORT INFORMATION
  Report Type: 
  Country: None (occurrence: None)
  Receive Date: 20050509
  Receipt Date: 20050421
  Transmission Date: 20051028
  Serious: No
  Sender: FDA-Public Use
  Company Number: 11004

PATIENT
  Age: 10 Year
  Sex: Female

DRUGS (4)
  1. METHOTREXATE [Suspect]
     Indication: B-CELL TYPE ACUTE LEUKAEMIA
     Dosage: IT
     Route: 037
  2. MERCAPTOPURINE [Suspect]
     Indication: B-CELL TYPE ACUTE LEUKAEMIA
  3. CYTARABINE [Suspect]
     Indication: B-CELL TYPE ACUTE LEUKAEMIA
     Dosage: IT
     Route: 037
  4. HYDROCORTISONE [Suspect]
     Indication: B-CELL TYPE ACUTE LEUKAEMIA
     Dosage: IT
     Route: 037

REACTIONS (1)
  - PARTIAL SEIZURES [None]
